FAERS Safety Report 9008878 (Version 1)
Quarter: 2013Q1

REPORT INFORMATION
  Report Type: Spontaneous
  Country: DE (occurrence: DE)
  Receive Date: 20130111
  Receipt Date: 20130111
  Transmission Date: 20140127
  Serious: Yes (Other)
  Sender: FDA-Public Use
  Company Number: GXKR2013DE000502

PATIENT
  Sex: Female
  Weight: 63 kg

DRUGS (2)
  1. BELLA HEXAL [Suspect]
     Dosage: 1 DF WITH 2 MG CYPROTERONE AND 0.035 MG ETHINYLESTRADIOL/DAY
     Route: 048
     Dates: start: 201210, end: 201212
  2. MIRENA [Concomitant]
     Dosage: UNK UKN, UNK
     Dates: start: 2004

REACTIONS (10)
  - Syncope [Recovering/Resolving]
  - Dyspnoea [Recovering/Resolving]
  - Chest discomfort [Recovering/Resolving]
  - Cough [Recovering/Resolving]
  - Asthenia [Recovering/Resolving]
  - Pain in extremity [Recovering/Resolving]
  - Irritability [Recovering/Resolving]
  - Sensation of heaviness [Recovering/Resolving]
  - Abdominal pain upper [Recovering/Resolving]
  - Depressed mood [Recovering/Resolving]
